FAERS Safety Report 17503334 (Version 3)
Quarter: 2020Q1

REPORT INFORMATION
  Report Type: Spontaneous
  Country: CH (occurrence: CH)
  Receive Date: 20200305
  Receipt Date: 20200324
  Transmission Date: 20200409
  Serious: Yes (Other)
  Sender: FDA-Public Use
  Company Number: CH-ALLERGAN-2010066US

PATIENT
  Sex: Female
  Weight: 2.98 kg

DRUGS (2)
  1. FOSFOMYCIN TROMETHAMINE - BP [Suspect]
     Active Substance: FOSFOMYCIN TROMETHAMINE
     Indication: EXPOSURE DURING PREGNANCY
     Dosage: 3 G, SINGLE
     Route: 064
     Dates: start: 200201, end: 200201
  2. FOSFOMYCIN TROMETHAMINE - BP [Suspect]
     Active Substance: FOSFOMYCIN TROMETHAMINE
     Dosage: 3 G, SINGLE
     Route: 064
     Dates: start: 200112, end: 200112

REACTIONS (2)
  - Pyelocaliectasis [Not Recovered/Not Resolved]
  - Pregnancy [Unknown]
